FAERS Safety Report 8583265-4 (Version None)
Quarter: 2012Q3

REPORT INFORMATION
  Report Type: 
  Country: None (occurrence: None)
  Receive Date: 20120809
  Receipt Date: 20120807
  Transmission Date: 20120928
  Serious: Yes (Death, Hospitalization)
  Sender: FDA-Public Use
  Company Number: US-AMGEN-US317881

PATIENT
  Age: 74 Year
  Sex: Male

DRUGS (6)
  1. DOCETAXEL [Concomitant]
     Indication: SQUAMOUS CELL CARCINOMA
     Dosage: 128 MG, UNK
     Route: 042
     Dates: start: 20080922, end: 20081013
  2. NEULASTA [Concomitant]
     Dosage: 6 MG, UNK
     Route: 058
  3. TAMSULOSIN HCL [Concomitant]
  4. CISPLATIN [Concomitant]
     Indication: SQUAMOUS CELL CARCINOMA
     Dosage: 128 MG, UNK
     Route: 042
     Dates: start: 20080922, end: 20081013
  5. ZOLEDRONIC ACID [Concomitant]
     Indication: SQUAMOUS CELL CARCINOMA
     Dosage: 4 MG, UNK
     Route: 042
     Dates: start: 20080912, end: 20081013
  6. PANITUMUMAB [Suspect]
     Indication: SQUAMOUS CELL CARCINOMA
     Dosage: UNK UNK, UNK
     Route: 042
     Dates: start: 20080922, end: 20081013

REACTIONS (6)
  - HYPOTENSION [None]
  - DEHYDRATION [None]
  - RENAL FAILURE ACUTE [None]
  - HAEMOPTYSIS [None]
  - BLOOD CREATININE INCREASED [None]
  - ABDOMINAL PAIN [None]
